FAERS Safety Report 6593433-9 (Version None)
Quarter: 2010Q1

REPORT INFORMATION
  Report Type: 
  Country: None (occurrence: None)
  Receive Date: 20100222
  Receipt Date: 20090421
  Transmission Date: 20100710
  Serious: No
  Sender: FDA-Public Use
  Company Number: US-BRISTOL-MYERS SQUIBB COMPANY-14596134

PATIENT
  Age: 67 Year
  Sex: Female
  Weight: 54 kg

DRUGS (6)
  1. ORENCIA [Suspect]
     Indication: RHEUMATOID ARTHRITIS
     Dosage: LAST INF:16MAR2009;TOTAL 3 INFUSIONS
     Dates: start: 20090126, end: 20090316
  2. OMEPRAZOLE [Concomitant]
  3. OXYBUTYNIN [Concomitant]
  4. VITAMIN D [Concomitant]
  5. POTASSIUM [Concomitant]
  6. NAPROXEN [Concomitant]

REACTIONS (1)
  - HYPERSENSITIVITY [None]
